FAERS Safety Report 19264479 (Version 1)
Quarter: 2021Q2

REPORT INFORMATION
  Report Type: Spontaneous
  Country: US (occurrence: US)
  Receive Date: 20210517
  Receipt Date: 20210517
  Transmission Date: 20210717
  Serious: Yes (Other)
  Sender: FDA-Public Use
  Company Number: None

PATIENT
  Age: 20 Year
  Sex: Female
  Weight: 65.77 kg

DRUGS (2)
  1. CLOTRIMAZOLE/BETAMETHASONE [Suspect]
     Active Substance: BETAMETHASONE\CLOTRIMAZOLE
     Indication: FUNGAL INFECTION
     Route: 061
     Dates: start: 20210404
  2. TRIAMCINOLONE 0.5% [Suspect]
     Active Substance: TRIAMCINOLONE
     Indication: HYPERSENSITIVITY
     Route: 061
     Dates: start: 20210416

REACTIONS (1)
  - Application site burn [None]

NARRATIVE: CASE EVENT DATE: 20210429
